FAERS Safety Report 25765188 (Version 1)
Quarter: 2025Q3

REPORT INFORMATION
  Report Type: Report from Study
  Country: EU (occurrence: EU)
  Receive Date: 20250905
  Receipt Date: 20250905
  Transmission Date: 20251021
  Serious: Yes (Death, Hospitalization)
  Sender: ROCHE
  Company Number: EU-ROCHE-10000380072

PATIENT

DRUGS (2)
  1. ATEZOLIZUMAB [Suspect]
     Active Substance: ATEZOLIZUMAB
     Indication: Hepatocellular carcinoma
     Route: 065
  2. BEVACIZUMAB [Suspect]
     Active Substance: BEVACIZUMAB
     Indication: Hepatocellular carcinoma
     Route: 065

REACTIONS (11)
  - Myocarditis [Fatal]
  - Hepatitis [Fatal]
  - Acute myocardial infarction [Unknown]
  - Nephritis [Unknown]
  - Diabetes mellitus [Unknown]
  - Guillain-Barre syndrome [Unknown]
  - Encephalitis [Fatal]
  - Atrial fibrillation [Unknown]
  - Hypothyroidism [Unknown]
  - Thrombocytopenia [Fatal]
  - Infusion related reaction [Unknown]
